FAERS Safety Report 17703225 (Version 1)
Quarter: 2020Q2

REPORT INFORMATION
  Report Type: Spontaneous
  Country: US (occurrence: US)
  Receive Date: 20200423
  Receipt Date: 20200423
  Transmission Date: 20200714
  Serious: No
  Sender: FDA-Public Use
  Company Number: US-PURDUE-USA-2019-0147170

PATIENT
  Sex: Female

DRUGS (2)
  1. APTENSIO XR [Suspect]
     Active Substance: METHYLPHENIDATE HYDROCHLORIDE
     Indication: ATTENTION DEFICIT HYPERACTIVITY DISORDER
     Dosage: 10 MG, UNK
     Route: 048
  2. APTENSIO XR [Suspect]
     Active Substance: METHYLPHENIDATE HYDROCHLORIDE
     Dosage: 15 MG, UNK
     Route: 048

REACTIONS (4)
  - Disturbance in attention [Unknown]
  - Therapeutic product effect increased [Unknown]
  - Product quality issue [Unknown]
  - Therapeutic product effect incomplete [Unknown]
